FAERS Safety Report 23079317 (Version 2)
Quarter: 2023Q4

REPORT INFORMATION
  Report Type: Spontaneous
  Country: US (occurrence: US)
  Receive Date: 20231018
  Receipt Date: 20231206
  Transmission Date: 20240109
  Serious: Yes (Hospitalization, Other)
  Sender: FDA-Public Use
  Company Number: US-PFIZER INC-202300328013

PATIENT
  Age: 80 Year
  Sex: Female
  Weight: 67.131 kg

DRUGS (1)
  1. PREMARIN [Suspect]
     Active Substance: ESTROGENS, CONJUGATED
     Indication: Immune system disorder
     Dosage: ACTUALLY TAKING .125
     Route: 048
     Dates: start: 1988

REACTIONS (14)
  - Concussion [Unknown]
  - Breast tumour excision [Unknown]
  - Giant cell arteritis [Not Recovered/Not Resolved]
  - Cardiac disorder [Unknown]
  - Blood disorder [Unknown]
  - Post-acute COVID-19 syndrome [Unknown]
  - Gait disturbance [Unknown]
  - Malaise [Unknown]
  - Fatigue [Unknown]
  - Immune system disorder [Unknown]
  - Wrong technique in product usage process [Unknown]
  - Intentional product use issue [Unknown]
  - Product prescribing error [Unknown]
  - Off label use [Unknown]

NARRATIVE: CASE EVENT DATE: 20230921
